FAERS Safety Report 9167510 (Version 2)
Quarter: 2013Q2

REPORT INFORMATION
  Report Type: Spontaneous
  Country: US (occurrence: None)
  Receive Date: 20130301
  Receipt Date: 20130425
  Transmission Date: 20140414
  Serious: Yes (Other)
  Sender: FDA-Public Use
  Company Number: NSR_01047_2013

PATIENT
  Age: 1 Month
  Sex: Female

DRUGS (3)
  1. PROPRANOLOL [Suspect]
     Indication: EYELID HAEMANGIOMA
     Dosage: (2 MG/KG TID, [20MG/5ML SUSPENSION] ORAL)
     Route: 048
  2. CORTICOSTEROIDS [Concomitant]
  3. RANITIDINE [Concomitant]

REACTIONS (4)
  - Lethargy [None]
  - Cold sweat [None]
  - Heart rate decreased [None]
  - Blood pressure systolic decreased [None]
